FAERS Safety Report 16334624 (Version 1)
Quarter: 2019Q2

REPORT INFORMATION
  Report Type: Spontaneous
  Country: US (occurrence: US)
  Receive Date: 20190520
  Receipt Date: 20190520
  Transmission Date: 20190711
  Serious: Yes (Other)
  Sender: FDA-Public Use
  Company Number: US-ALLERGAN-1920847US

PATIENT
  Sex: Female

DRUGS (4)
  1. DALBAVANCIN HCL UNK [Suspect]
     Active Substance: DALBAVANCIN HYDROCHLORIDE
     Dosage: UNK
     Route: 065
  2. ANTIBIOTICS [Suspect]
     Active Substance: UNSPECIFIED INGREDIENT
     Indication: INFECTION
     Route: 065
  3. DALBAVANCIN HCL UNK [Suspect]
     Active Substance: DALBAVANCIN HYDROCHLORIDE
     Dosage: UNK
     Route: 065
  4. DALBAVANCIN HCL UNK [Suspect]
     Active Substance: DALBAVANCIN HYDROCHLORIDE
     Indication: INFECTION
     Dosage: 500 MG, CONTINUATION DOSE
     Route: 065

REACTIONS (6)
  - Renal tubular necrosis [Unknown]
  - Off label use [Unknown]
  - Pregnancy [Unknown]
  - Acute kidney injury [Not Recovered/Not Resolved]
  - Renal failure [Unknown]
  - IgA nephropathy [Unknown]
